FAERS Safety Report 9993398 (Version 1)
Quarter: 2014Q1

REPORT INFORMATION
  Report Type: Spontaneous
  Country: GB (occurrence: GB)
  Receive Date: 20140310
  Receipt Date: 20140310
  Transmission Date: 20141002
  Serious: Yes (Hospitalization)
  Sender: FDA-Public Use
  Company Number: PHHY2014GB028764

PATIENT
  Sex: Male

DRUGS (4)
  1. STALEVO [Suspect]
     Indication: PARKINSON^S DISEASE
     Dosage: 1 DF, FIVE TIMES A DAY, (200/150/37.5 MG)
     Route: 048
  2. MADOPAR [Concomitant]
     Dosage: UNK
  3. PERINDOPRIL [Concomitant]
     Dosage: UNK
  4. MOVICOL [Concomitant]
     Dosage: UNK

REACTIONS (3)
  - Fall [Not Recovered/Not Resolved]
  - Somnolence [Not Recovered/Not Resolved]
  - Dysphagia [Not Recovered/Not Resolved]
